FAERS Safety Report 5631956-7 (Version None)
Quarter: 2008Q1

REPORT INFORMATION
  Report Type: 
  Country: None (occurrence: None)
  Receive Date: 20080220
  Receipt Date: 20080211
  Transmission Date: 20080703
  Serious: Yes (Other)
  Sender: FDA-Public Use
  Company Number: IT-ELI_LILLY_AND_COMPANY-IT200802002325

PATIENT
  Sex: Male

DRUGS (6)
  1. GEMZAR [Suspect]
     Indication: LUNG NEOPLASM MALIGNANT
     Dosage: 1600 MG, PER CYCLE
     Route: 042
     Dates: start: 20080109, end: 20080128
  2. CISPLATIN [Concomitant]
     Indication: LUNG NEOPLASM MALIGNANT
     Dosage: 60 MG, PER CYCLE
     Route: 042
     Dates: start: 20080109, end: 20080128
  3. TICLOPIDINE HYDROCHLORIDE [Concomitant]
     Dosage: UNK, UNKNOWN
     Route: 048
  4. LANSOPRAZOLE [Concomitant]
     Dosage: 15 MG, UNKNOWN
     Route: 048
  5. VALPRESSION [Concomitant]
     Dosage: 80 MG, UNKNOWN
     Route: 048
  6. PRAVASELECT [Concomitant]
     Dosage: UNK, UNKNOWN
     Route: 048

REACTIONS (1)
  - THROMBOCYTHAEMIA [None]
